FAERS Safety Report 18906052 (Version 7)
Quarter: 2024Q2

REPORT INFORMATION
  Report Type: Report from Study
  Country: JP (occurrence: JP)
  Receive Date: 20210217
  Receipt Date: 20240415
  Transmission Date: 20240716
  Serious: Yes (Hospitalization, Other)
  Sender: FDA-Public Use
  Company Number: JP-TAKEDA-2020TJP022491

PATIENT
  Age: 69 Year
  Sex: Male
  Weight: 57 kg

DRUGS (9)
  1. LEUPROLIDE ACETATE [Suspect]
     Active Substance: ISOPROPYL ALCOHOL\LEUPROLIDE ACETATE
     Indication: Bulbospinal muscular atrophy congenital
     Dosage: 11.25 MILLIGRAM, Q3MONTHS
     Route: 058
     Dates: start: 20180209, end: 20231019
  2. CEFAZOLIN SODIUM [Concomitant]
     Active Substance: CEFAZOLIN SODIUM
     Indication: Product used for unknown indication
     Dosage: 2 GRAM
     Route: 065
     Dates: start: 20231010, end: 20231012
  3. HERBALS [Concomitant]
     Active Substance: HERBALS
     Indication: Bulbospinal muscular atrophy congenital
     Dosage: 7.5 GRAM
     Route: 065
     Dates: start: 20191209
  4. AMLODIPINE [Concomitant]
     Active Substance: AMLODIPINE BESYLATE
     Indication: Product used for unknown indication
     Dosage: 10 MILLIGRAM
     Route: 065
  5. ENSURE [Concomitant]
     Active Substance: AMINO ACIDS\DEXTROSE\ELECTROLYTES NOS\SOYBEAN OIL\VITAMINS
     Indication: Bulbospinal muscular atrophy congenital
     Dosage: 500 MILLILITER
     Route: 065
     Dates: start: 20180704
  6. AMBROXOL HYDROCHLORIDE [Concomitant]
     Active Substance: AMBROXOL HYDROCHLORIDE
     Indication: Bulbospinal muscular atrophy congenital
     Dosage: 45 MILLIGRAM
     Route: 065
     Dates: start: 20180209, end: 20180304
  7. CEFTRIAXONE SODIUM [Concomitant]
     Active Substance: CEFTRIAXONE SODIUM
     Indication: Product used for unknown indication
     Dosage: 2 GRAM
     Route: 065
     Dates: start: 20230913, end: 20230922
  8. ZOSYN [Concomitant]
     Active Substance: PIPERACILLIN SODIUM\TAZOBACTAM SODIUM
     Indication: Product used for unknown indication
     Dosage: 18 GRAM
     Route: 065
     Dates: start: 20230929, end: 20231004
  9. ZOSYN [Concomitant]
     Active Substance: PIPERACILLIN SODIUM\TAZOBACTAM SODIUM
     Indication: Product used for unknown indication
     Dosage: 18 GRAM
     Route: 065
     Dates: start: 20230906, end: 20230912

REACTIONS (6)
  - Diabetes mellitus [Recovering/Resolving]
  - Femur fracture [Recovered/Resolved]
  - Ankle fracture [Recovered/Resolved]
  - Hyperlipidaemia [Recovering/Resolving]
  - Dysphagia [Recovered/Resolved]
  - Pneumonia [Recovering/Resolving]

NARRATIVE: CASE EVENT DATE: 20191201
